FAERS Safety Report 4658680-1 (Version None)
Quarter: 2005Q2

REPORT INFORMATION
  Report Type: 
  Country: None (occurrence: None)
  Receive Date: 20050509
  Receipt Date: 20050203
  Transmission Date: 20051028
  Serious: Yes (Hospitalization)
  Sender: FDA-Public Use
  Company Number: S05-FRA-01644-01

PATIENT
  Age: 83 Year
  Sex: Female

DRUGS (8)
  1. CITALOPRAM HYDROBROMIDE [Suspect]
     Dosage: 1 UNK QD PO
     Route: 048
     Dates: end: 20041114
  2. TRAMADOL HCL [Suspect]
     Dosage: 2 UNK QD PO
     Route: 048
     Dates: start: 20041109, end: 20041114
  3. ARICEPT [Suspect]
     Dosage: 10 MG QD PO
     Route: 048
     Dates: end: 20041117
  4. FENOFIBRATE [Concomitant]
  5. FOSAMAX [Concomitant]
  6. PRINZIDE [Concomitant]
  7. DOLIPRANE (PARACETAMOL) [Concomitant]
  8. CELECTOL [Concomitant]

REACTIONS (13)
  - BLOOD SODIUM DECREASED [None]
  - CEREBRAL ATROPHY [None]
  - CONDITION AGGRAVATED [None]
  - CONFUSIONAL STATE [None]
  - DEMENTIA ALZHEIMER'S TYPE [None]
  - DISINHIBITION [None]
  - DISORIENTATION [None]
  - DRUG INTERACTION [None]
  - EPILEPSY [None]
  - EXTRAPYRAMIDAL DISORDER [None]
  - HALLUCINATIONS, MIXED [None]
  - LOSS OF CONSCIOUSNESS [None]
  - SOMNOLENCE [None]
